FAERS Safety Report 13572086 (Version 2)
Quarter: 2017Q2

REPORT INFORMATION
  Report Type: Spontaneous
  Country: US (occurrence: US)
  Receive Date: 20170523
  Receipt Date: 20170529
  Transmission Date: 20170830
  Serious: No
  Sender: FDA-Public Use
  Company Number: US-ASTRAZENECA-2017SE54249

PATIENT
  Age: 35 Year
  Sex: Female

DRUGS (1)
  1. ZOLADEX [Suspect]
     Active Substance: GOSERELIN ACETATE
     Dosage: 10.8MG UNKNOWN
     Route: 058
     Dates: start: 2011

REACTIONS (7)
  - Bone pain [Unknown]
  - Neck pain [Unknown]
  - Menstrual disorder [Recovered/Resolved]
  - Pain [Unknown]
  - Tooth disorder [Unknown]
  - Depression [Unknown]
  - Osteoporosis [Unknown]
